FAERS Safety Report 18495688 (Version 1)
Quarter: 2020Q4

REPORT INFORMATION
  Report Type: Spontaneous
  Country: BR (occurrence: BR)
  Receive Date: 20201112
  Receipt Date: 20201112
  Transmission Date: 20210114
  Serious: Yes (Other)
  Sender: FDA-Public Use
  Company Number: BR-PFIZER INC-2019454352

PATIENT
  Age: 73 Year
  Sex: Female

DRUGS (6)
  1. XALATAN [Suspect]
     Active Substance: LATANOPROST
     Indication: CATARACT
     Dosage: 1 GTT, 2X/DAY (1 DROP IN EACH EYE IN THE MORNING AND EVENING)
     Route: 047
     Dates: start: 2018
  2. XALATAN [Suspect]
     Active Substance: LATANOPROST
     Indication: GLAUCOMA
     Dosage: 1 GTT, 2X/DAY (1 DROP IN EACH EYE IN THE MORNING AND EVENING)
     Route: 047
  3. DORSAL [Concomitant]
     Indication: GLAUCOMA
     Dosage: UNK
  4. XALATAN [Suspect]
     Active Substance: LATANOPROST
     Indication: VISUAL IMPAIRMENT
  5. DORSAL [Concomitant]
     Indication: VISUAL IMPAIRMENT
  6. DORSAL [Concomitant]
     Indication: CATARACT

REACTIONS (3)
  - Off label use [Unknown]
  - Auditory disorder [Unknown]
  - Cataract [Unknown]

NARRATIVE: CASE EVENT DATE: 2019
